FAERS Safety Report 9293996 (Version 1)
Quarter: 2013Q1

REPORT INFORMATION
  Report Type: Spontaneous
  Country: US (occurrence: None)
  Receive Date: 20121221
  Receipt Date: 20121221
  Transmission Date: 20140127
  Serious: Yes (Other)
  Sender: FDA-Public Use
  Company Number: PHEH2011US011464

PATIENT
  Age: 56 Year
  Sex: Female

DRUGS (11)
  1. RITALIN-SR [Suspect]
     Indication: RENAL DISORDER
  2. RITALIN [Suspect]
  3. LISINOPRIL [Suspect]
     Indication: RENAL DISORDER
     Dosage: 0.5 DF, QD
  4. CIPRO [Suspect]
     Dosage: 0.5 DF, QD
  5. ACTOS [Suspect]
  6. CHOLESTEROL (CHOLESTEROL) [Concomitant]
  7. LYRICA (PREGABALIN) [Concomitant]
  8. LOVASTATIN (LOVASTATIN) [Concomitant]
  9. FISH OIL (FISH OIL) [Concomitant]
  10. LOVAZA (OMEGA-3 ACID ETHL ESTERS) [Concomitant]
  11. ATIVAN (LORAZEPAM) [Concomitant]

REACTIONS (7)
  - Hallucination [None]
  - Hyperhidrosis [None]
  - Drug intolerance [None]
  - Skin exfoliation [None]
  - Vision blurred [None]
  - Hypersensitivity [None]
  - Dizziness [None]
